FAERS Safety Report 4987999-X (Version None)
Quarter: 2006Q2

REPORT INFORMATION
  Report Type: 
  Country: None (occurrence: None)
  Receive Date: 20060426
  Receipt Date: 20060403
  Transmission Date: 20061013
  Serious: Yes (Other)
  Sender: FDA-Public Use
  Company Number: 2006009954

PATIENT
  Age: 37 Year
  Sex: Female

DRUGS (5)
  1. CETIRIZINE HCL [Suspect]
     Indication: SWELLING
     Dosage: 1 DF (1 IN 1 D)
     Dates: start: 20050901, end: 20050901
  2. ERYTHROMYCIN [Suspect]
     Indication: ILL-DEFINED DISORDER
  3. PENICILLIN V [Suspect]
     Indication: RASH
     Dates: start: 19920101, end: 19920101
  4. FLOXACILLIN SODIUM [Suspect]
     Indication: ILL-DEFINED DISORDER
  5. CEFIXIME [Suspect]
     Indication: ILL-DEFINED DISORDER

REACTIONS (5)
  - DISEASE RECURRENCE [None]
  - FEELING HOT AND COLD [None]
  - GENERALISED OEDEMA [None]
  - RASH [None]
  - SKIN EXFOLIATION [None]
